FAERS Safety Report 7965131 (Version 3)
Quarter: 2014Q2

REPORT INFORMATION
  Report Type: Report from Study
  Country: US (occurrence: US)
  Receive Date: 20110527
  Receipt Date: 20140421
  Transmission Date: 20141212
  Serious: Yes (Other)
  Sender: FDA-Public Use
  Company Number: US-UCBSA-033949

PATIENT
  Age: 0 Year
  Sex: Female
  Weight: 3.2 kg

DRUGS (11)
  1. KEPPRA XR [Suspect]
     Indication: EPILEPSY
     Route: 064
     Dates: start: 20100818, end: 20100818
  2. KEPPRA XR [Suspect]
     Indication: EPILEPSY
     Route: 064
     Dates: start: 20100819, end: 20101022
  3. KEPPRA XR [Suspect]
     Indication: EPILEPSY
     Route: 064
     Dates: start: 20101023, end: 2010
  4. KEPPRA XR [Suspect]
     Indication: EPILEPSY
     Dosage: 3500 -4000 MG/DAY
     Route: 064
     Dates: start: 20101130, end: 2010
  5. KEPPRA XR [Suspect]
     Indication: EPILEPSY
     Route: 064
     Dates: start: 20101207, end: 2010
  6. KEPPRA XR [Suspect]
     Indication: EPILEPSY
     Route: 064
     Dates: start: 20101216, end: 20110310
  7. KEPPRA [Suspect]
     Indication: EPILEPSY
     Route: 064
     Dates: start: 2010, end: 20110310
  8. FOLIC ACID [Concomitant]
     Indication: PREGNANCY
     Route: 064
     Dates: start: 201008, end: 20110310
  9. MULTIVITAMINS [Concomitant]
     Indication: PREGNANCY
     Dosage: 6 PILLS ONCE A DAY
     Route: 064
     Dates: end: 20110310
  10. MULTIVITAMINS [Concomitant]
     Indication: VITAMIN SUPPLEMENTATION
     Dosage: 6 PILLS ONCE A DAY
     Route: 064
     Dates: end: 20110310
  11. PRENATAL VITAMINS [Concomitant]
     Route: 064
     Dates: end: 20110310

REACTIONS (2)
  - Premature baby [Unknown]
  - Foetal exposure during pregnancy [Recovered/Resolved]
